FAERS Safety Report 6537999-3 (Version None)
Quarter: 2010Q1

REPORT INFORMATION
  Report Type: 
  Country: None (occurrence: None)
  Receive Date: 20100112
  Receipt Date: 20100112
  Transmission Date: 20100710
  Serious: Yes (Life-Threatening, Hospitalization, Other)
  Sender: FDA-Public Use
  Company Number: None

PATIENT
  Age: 45 Year
  Sex: Female
  Weight: 58.9676 kg

DRUGS (2)
  1. VENOFER [Suspect]
     Indication: ANAEMIA
     Dosage: UNKNOWN WEEKLY X 4 IV DRIP; UNKNOWN WEEKLY X 6 IV DRIP
     Route: 041
     Dates: start: 20090619, end: 20090619
  2. VENOFER [Suspect]
     Indication: ANAEMIA
     Dosage: UNKNOWN WEEKLY X 4 IV DRIP; UNKNOWN WEEKLY X 6 IV DRIP
     Route: 041
     Dates: start: 20091228, end: 20091228

REACTIONS (1)
  - MALAISE [None]
